FAERS Safety Report 4839231-5 (Version None)
Quarter: 2005Q4

REPORT INFORMATION
  Report Type: 
  Country: None (occurrence: None)
  Receive Date: 20051129
  Receipt Date: 20051110
  Transmission Date: 20060501
  Serious: Yes (Other)
  Sender: FDA-Public Use
  Company Number: GB-BRISTOL-MYERS SQUIBB COMPANY-13194428

PATIENT
  Age: 65 Year
  Sex: Female

DRUGS (2)
  1. CETUXIMAB [Suspect]
     Indication: COLORECTAL CANCER
     Dosage: MOST RECENT INFUSION 27-OCT-05 (41ST DOSE)
     Route: 041
     Dates: start: 20041206
  2. IRINOTECAN HCL [Suspect]
     Indication: COLORECTAL CANCER

REACTIONS (1)
  - OPHTHALMOLOGICAL EXAMINATION ABNORMAL [None]
